FAERS Safety Report 9659883 (Version 1)
Quarter: 2013Q4

REPORT INFORMATION
  Report Type: Report from Study
  Country: BR (occurrence: BR)
  Receive Date: 20131031
  Receipt Date: 20131031
  Transmission Date: 20140711
  Serious: Yes (Hospitalization)
  Sender: FDA-Public Use
  Company Number: BR-ROCHE-1296341

PATIENT
  Sex: Female

DRUGS (9)
  1. XOLAIR [Suspect]
     Indication: ASTHMA
     Route: 065
  2. XOLAIR [Suspect]
     Indication: HYPERSENSITIVITY
  3. DIPYRONE [Suspect]
     Indication: NASOPHARYNGITIS
     Route: 065
  4. DIPYRONE [Suspect]
     Indication: PAIN IN EXTREMITY
  5. ALENIA (BRAZIL) [Concomitant]
  6. BUDESONID [Concomitant]
  7. OMEPRAZOLE [Concomitant]
  8. KOLANTYL [Concomitant]
  9. DOMPERIDONE [Concomitant]

REACTIONS (13)
  - Fall [Unknown]
  - Abasia [Recovered/Resolved]
  - Respiratory arrest [Recovered/Resolved]
  - Sinusitis [Not Recovered/Not Resolved]
  - Osteoporosis [Not Recovered/Not Resolved]
  - Tendonitis [Not Recovered/Not Resolved]
  - Pain in extremity [Not Recovered/Not Resolved]
  - Fear [Unknown]
  - Feeling abnormal [Unknown]
  - Vomiting [Unknown]
  - Malaise [Unknown]
  - Nasopharyngitis [Recovered/Resolved]
  - Paraparesis [Unknown]
